FAERS Safety Report 5067181-0 (Version None)
Quarter: 2006Q3

REPORT INFORMATION
  Report Type: 
  Country: None (occurrence: None)
  Receive Date: 20060727
  Receipt Date: 20060717
  Transmission Date: 20061208
  Serious: Yes (Other)
  Sender: FDA-Public Use
  Company Number: 2006088282

PATIENT
  Age: 56 Year
  Sex: Female
  Weight: 52.1637 kg

DRUGS (4)
  1. CAMPTOSAR [Suspect]
     Indication: COLON CANCER
     Dosage: 340 MG
     Dates: start: 20060712
  2. ATENOLOL [Concomitant]
  3. ASPIRIN [Concomitant]
  4. XELODA [Concomitant]

REACTIONS (2)
  - FACE OEDEMA [None]
  - SPEECH DISORDER [None]
